FAERS Safety Report 6365507-9 (Version None)
Quarter: 2009Q3

REPORT INFORMATION
  Report Type: 
  Country: None (occurrence: None)
  Receive Date: 20090919
  Receipt Date: 20090819
  Transmission Date: 20100115
  Serious: No
  Sender: FDA-Public Use
  Company Number: US-ABBOTT-09P-163-0592029-00

PATIENT
  Sex: Male
  Weight: 111.23 kg

DRUGS (8)
  1. HUMIRA [Suspect]
     Indication: RHEUMATOID ARTHRITIS
     Dates: start: 20090301, end: 20090401
  2. FOLIC ACID [Concomitant]
     Indication: DRUG USE FOR UNKNOWN INDICATION
     Route: 048
  3. METHOTREXATE [Concomitant]
     Indication: DRUG USE FOR UNKNOWN INDICATION
     Dosage: 2.5 MG X 10 TABLETS
     Route: 048
  4. HYDROXYCLOR [Concomitant]
     Indication: DRUG USE FOR UNKNOWN INDICATION
  5. FISH OIL [Concomitant]
     Indication: DRUG USE FOR UNKNOWN INDICATION
  6. GARLIC [Concomitant]
     Indication: MEDICAL DIET
  7. MULTI-VITAMIN [Concomitant]
     Indication: DRUG USE FOR UNKNOWN INDICATION
  8. VICODIN [Concomitant]
     Indication: PAIN

REACTIONS (3)
  - ARTHRALGIA [None]
  - DRUG INEFFECTIVE [None]
  - NASOPHARYNGITIS [None]
